FAERS Safety Report 6314783-7 (Version None)
Quarter: 2009Q3

REPORT INFORMATION
  Report Type: 
  Country: None (occurrence: None)
  Receive Date: 20090817
  Receipt Date: 20090806
  Transmission Date: 20100115
  Serious: Yes (Other)
  Sender: FDA-Public Use
  Company Number: 349804

PATIENT
  Age: 7 Year
  Sex: Female

DRUGS (5)
  1. METHOTREXATE SODIUM [Suspect]
     Indication: POLYARTHRITIS
     Dosage: 10 MG, 1 WEEK, SUBCUTANEOUS
     Route: 058
     Dates: start: 20051004
  2. (METHYLPREDNISOLONE) [Concomitant]
  3. PREDNISOLONE [Concomitant]
  4. LEVETIRACETAM [Concomitant]
  5. DIAZEPAM [Concomitant]

REACTIONS (2)
  - CONVULSION [None]
  - DROP ATTACKS [None]
